FAERS Safety Report 9008804 (Version 1)
Quarter: 2013Q1

REPORT INFORMATION
  Report Type: Spontaneous
  Country: FR (occurrence: FR)
  Receive Date: 20130111
  Receipt Date: 20130111
  Transmission Date: 20140127
  Serious: Yes (Hospitalization, Other)
  Sender: FDA-Public Use
  Company Number: FR-UCBSA-074773

PATIENT
  Age: 65 Year
  Sex: Female

DRUGS (4)
  1. KEPPRA [Suspect]
     Indication: EPILEPSY
     Dosage: UNKNOWN DOSE
     Route: 048
     Dates: start: 20121017, end: 20121125
  2. LAMICTAL [Suspect]
     Indication: EPILEPSY
     Dosage: DAILY DOSE: 100 MG
     Route: 048
     Dates: start: 20121017, end: 20121125
  3. CHONDROSULF [Concomitant]
  4. ALEPSAL [Concomitant]
     Indication: EPILEPSY

REACTIONS (2)
  - Erythema multiforme [Recovered/Resolved]
  - Mucosal erosion [Recovered/Resolved]
